FAERS Safety Report 8505154 (Version 3)
Quarter: 2012Q4

REPORT INFORMATION
  Report Type: 
  Country: US (occurrence: US)
  Receive Date: 20120412
  Receipt Date: 20121003
  Transmission Date: 20130627
  Serious: Yes (Hospitalization)
  Sender: FDA-Public Use
  Company Number: US-BAYER-2012-033403

PATIENT
  Age: 20 Year
  Sex: Female
  Weight: 84 kg

DRUGS (3)
  1. YASMIN [Suspect]
     Indication: CONTRACEPTION
     Dosage: UNK
     Dates: start: 200510, end: 200811
  2. YASMIN [Suspect]
     Indication: ACNE
  3. NEXIUM [Concomitant]

REACTIONS (12)
  - Gallbladder non-functioning [None]
  - Cholecystitis acute [None]
  - Abdominal pain [None]
  - Dizziness [None]
  - Hyperhidrosis [None]
  - Back pain [None]
  - Nausea [None]
  - Gastrointestinal motility disorder [None]
  - Painful defaecation [None]
  - Constipation [None]
  - Injury [None]
  - Emotional distress [None]
